FAERS Safety Report 4594685-7 (Version None)
Quarter: 2005Q1

REPORT INFORMATION
  Report Type: 
  Country: None (occurrence: None)
  Receive Date: 20050301
  Receipt Date: 20041218
  Transmission Date: 20050727
  Serious: No
  Sender: FDA-Public Use
  Company Number: US-BRISTOL-MYERS SQUIBB COMPANY-12801205

PATIENT
  Age: 5 Decade
  Sex: Male

DRUGS (2)
  1. ERBITUX [Suspect]
     Indication: NEOPLASM MALIGNANT
     Route: 042
     Dates: start: 20040101, end: 20040101
  2. GEMCITABINE [Concomitant]
     Dosage: INTERRUPTED FOR ONE WEEK (DATE NOT REPORTED).

REACTIONS (2)
  - RASH [None]
  - SKIN FISSURES [None]
